FAERS Safety Report 9073212 (Version 1)
Quarter: 2013Q1

REPORT INFORMATION
  Report Type: Report from Study
  Country: US (occurrence: US)
  Receive Date: 20130128
  Receipt Date: 20130128
  Transmission Date: 20140127
  Serious: No
  Sender: FDA-Public Use
  Company Number: US-ABBOTT-12P-163-0903709-00

PATIENT
  Age: 59 Year
  Sex: Female

DRUGS (11)
  1. HUMIRA 40 MG/0.8 ML PEN [Suspect]
     Indication: PSORIASIS
     Dates: start: 20120206
  2. SINGULAR [Concomitant]
     Indication: ASTHMA
  3. FLONASE [Concomitant]
     Indication: ASTHMA
     Dosage: 1 SPRAY IN EACH NARE
     Route: 045
  4. SYMBICORT [Concomitant]
     Indication: ASTHMA
  5. OMEPRAZOLE [Concomitant]
     Indication: GASTROOESOPHAGEAL REFLUX DISEASE
  6. METHOTREXATE [Concomitant]
     Indication: PSORIASIS
  7. HERBAL PILL [Concomitant]
     Indication: PSORIASIS
  8. FOLIC ACID [Concomitant]
     Indication: POLYMEDICATION
  9. TRAMADOL [Concomitant]
     Indication: PAIN
     Dosage: NEVER MORE THAN 1 A DAY
  10. SILVADENE [Concomitant]
     Indication: PSORIASIS
     Dosage: APPLY AS NEEDED TO AFFECTED AREAS
     Route: 061
  11. TRIAMCINOLONE [Concomitant]
     Indication: PSORIASIS
     Dosage: AFTER SHOWER OR AT BEDTIME-AFFECTED AREA
     Route: 061

REACTIONS (6)
  - Throat tightness [Not Recovered/Not Resolved]
  - Feeling abnormal [Unknown]
  - Swelling [Unknown]
  - Inappropriate affect [Unknown]
  - Balance disorder [Unknown]
  - Gait disturbance [Unknown]
